FAERS Safety Report 9287045 (Version 1)
Quarter: 2013Q2

REPORT INFORMATION
  Report Type: Report from Study
  Country: KR (occurrence: KR)
  Receive Date: 20130513
  Receipt Date: 20130513
  Transmission Date: 20140414
  Serious: Yes (Hospitalization)
  Sender: FDA-Public Use
  Company Number: KR-B.I. PHARMACEUTICALS,INC./RIDGEFIELD-2013-CS-00314RK

PATIENT
  Age: 30 Year
  Sex: Male
  Weight: 94 kg

DRUGS (2)
  1. TWYNSTA [Suspect]
     Indication: HYPERTENSION
     Dosage: TEMISARTAN+AMLODIPINE:80MG+5MG
     Route: 048
     Dates: start: 20130125
  2. OMACOR SC [Concomitant]
     Indication: HYPERLIPIDAEMIA
     Dosage: 1000 MG
     Route: 048
     Dates: start: 20130125

REACTIONS (4)
  - Thoracic vertebral fracture [Recovered/Resolved]
  - Concussion [Recovered/Resolved]
  - Laceration [Recovered/Resolved]
  - Road traffic accident [Recovered/Resolved]
